FAERS Safety Report 5716125-4 (Version None)
Quarter: 2008Q2

REPORT INFORMATION
  Report Type: 
  Country: None (occurrence: None)
  Receive Date: 20080423
  Receipt Date: 20080423
  Transmission Date: 20081010
  Serious: No
  Sender: FDA-Public Use
  Company Number: None

PATIENT
  Age: 51 Year
  Sex: Female
  Weight: 107.0489 kg

DRUGS (2)
  1. ADVAIR DISKUS 250/50 [Suspect]
     Indication: PNEUMONIA
     Dosage: INHALE 1 PUFF 2 TIMES A D INHAL
     Route: 055
     Dates: start: 20080414
  2. COMBIVENT [Suspect]
     Indication: PNEUMONIA
     Dosage: COMBIVENT INHALER 2 PUFFS EVERY 4RS INHAL
     Route: 055
     Dates: start: 20080414

REACTIONS (2)
  - HYPERHIDROSIS [None]
  - VISION BLURRED [None]
